FAERS Safety Report 8779583 (Version 1)
Quarter: 2012Q4

REPORT INFORMATION
  Report Type: 
  Country: US (occurrence: US)
  Receive Date: 20120912
  Receipt Date: 20120912
  Transmission Date: 20130627
  Serious: Yes (Other)
  Sender: FDA-Public Use
  Company Number: US-PFIZER INC-2012221221

PATIENT
  Age: 74 Year
  Sex: Male
  Weight: 82.54 kg

DRUGS (1)
  1. VIAGRA [Suspect]
     Indication: ERECTILE DYSFUNCTION
     Dosage: 100 mg, as needed
     Dates: end: 2012

REACTIONS (5)
  - Prostate cancer [Unknown]
  - Prostatic specific antigen abnormal [Unknown]
  - Blood testosterone abnormal [Unknown]
  - Headache [Unknown]
  - Drug ineffective [Unknown]
